FAERS Safety Report 15486217 (Version 2)
Quarter: 2018Q4

REPORT INFORMATION
  Report Type: Spontaneous
  Country: FR (occurrence: FR)
  Receive Date: 20181011
  Receipt Date: 20181109
  Transmission Date: 20190205
  Serious: Yes (Hospitalization, Other)
  Sender: FDA-Public Use
  Company Number: FR-BIOVITRUM-2018FR1165

PATIENT
  Age: 60 Year
  Sex: Male

DRUGS (14)
  1. METFORMINE [Concomitant]
     Active Substance: METFORMIN HYDROCHLORIDE
     Route: 048
  2. DOLIPRANE [Concomitant]
     Active Substance: ACETAMINOPHEN
     Route: 048
  3. OROZAMUDOL [Concomitant]
     Active Substance: TRAMADOL
     Route: 048
  4. ENTRESTO [Concomitant]
     Active Substance: SACUBITRIL\VALSARTAN
     Dosage: SACUBITRIL/VALSARTAN 49 MG/51 MG
     Route: 048
  5. PROCORALAN [Concomitant]
     Active Substance: IVABRADINE
     Route: 048
  6. NOVORAPID [Concomitant]
     Active Substance: INSULIN ASPART
     Dosage: 100 U/ML
  7. ZAMUDOL L.P [Concomitant]
     Route: 048
  8. KINERET [Suspect]
     Active Substance: ANAKINRA
     Indication: GOUT
     Route: 058
     Dates: start: 20180727, end: 20180729
  9. DUOPLAVIN [Concomitant]
     Active Substance: ASPIRIN\CLOPIDOGREL
     Dosage: 75 MG/75 MG
     Route: 048
  10. ZYLORIC [Suspect]
     Active Substance: ALLOPURINOL
     Indication: GOUT
     Route: 048
     Dates: start: 20180724
  11. PRIMPERAN [Concomitant]
     Active Substance: METOCLOPRAMIDE HYDROCHLORIDE
     Route: 048
  12. NEBIVOLOL. [Concomitant]
     Active Substance: NEBIVOLOL
     Route: 048
  13. LASILIX [Concomitant]
     Active Substance: FUROSEMIDE
     Route: 048
  14. AMIODARONE [Concomitant]
     Active Substance: AMIODARONE

REACTIONS (3)
  - Bilirubin conjugated increased [Recovered/Resolved]
  - Hepatocellular injury [Recovered/Resolved]
  - Transaminases increased [Recovered/Resolved]

NARRATIVE: CASE EVENT DATE: 20180729
